FAERS Safety Report 9302642 (Version 3)
Quarter: 2013Q3

REPORT INFORMATION
  Report Type: Report from Study
  Country: US (occurrence: US)
  Receive Date: 20130522
  Receipt Date: 20130917
  Transmission Date: 20140515
  Serious: Yes (Hospitalization)
  Sender: FDA-Public Use
  Company Number: US-JNJFOC-20130509326

PATIENT
  Age: 17 Year
  Sex: Female
  Weight: 55.9 kg

DRUGS (1)
  1. REMICADE [Suspect]
     Indication: INFLAMMATORY BOWEL DISEASE
     Route: 042
     Dates: start: 20111216

REACTIONS (2)
  - Appendicitis [Recovered/Resolved]
  - Intestinal stenosis [Recovered/Resolved]
